FAERS Safety Report 25664281 (Version 2)
Quarter: 2025Q3

REPORT INFORMATION
  Report Type: Report from Study
  Country: US (occurrence: US)
  Receive Date: 20250811
  Receipt Date: 20250820
  Transmission Date: 20251021
  Serious: No
  Sender: SUNOVION
  Company Number: US-SUMITOMO PHARMA SWITZERLAND GMBH-2025SPA007427

PATIENT
  Age: 92 Year
  Sex: Male

DRUGS (7)
  1. ORGOVYX [Suspect]
     Active Substance: RELUGOLIX
     Indication: Prostate cancer
     Dosage: 120 MG, QD
     Route: 048
     Dates: start: 20250606
  2. ASPIRIN [Concomitant]
     Active Substance: ASPIRIN
  3. ATORVASTATIN CALCIUM [Concomitant]
     Active Substance: ATORVASTATIN CALCIUM
  4. COLACE [Concomitant]
     Active Substance: DOCUSATE SODIUM
  5. ERLEADA [Concomitant]
     Active Substance: APALUTAMIDE
  6. LOSARTAN POTASSIUM [Concomitant]
     Active Substance: LOSARTAN POTASSIUM
  7. TADALAFIL [Concomitant]
     Active Substance: TADALAFIL

REACTIONS (4)
  - Fatigue [Unknown]
  - Asthenia [Unknown]
  - Incorrect dose administered [Recovered/Resolved]
  - Therapy cessation [Unknown]
